FAERS Safety Report 4644428-3 (Version None)
Quarter: 2005Q2

REPORT INFORMATION
  Report Type: 
  Country: None (occurrence: None)
  Receive Date: 20050331
  Receipt Date: 20041207
  Transmission Date: 20051028
  Serious: No
  Sender: FDA-Public Use
  Company Number: 04P-163-0282593-00

PATIENT
  Age: 73 Year
  Sex: Female
  Weight: 68.0396 kg

DRUGS (7)
  1. HUMIRA [Suspect]
     Indication: RHEUMATOID ARTHRITIS
     Dosage: 40 MG, 1 IN 2 WK, SUBCUTANEOUS
     Route: 058
     Dates: start: 20040908, end: 20041201
  2. CELECOXIB [Concomitant]
  3. PREDNISONE [Concomitant]
  4. ALENDRONATE SODIUM [Concomitant]
  5. MULTI-VITAMINS [Concomitant]
  6. AZATHIOPRINE [Concomitant]
  7. FLUOXETINE HCL [Concomitant]

REACTIONS (1)
  - SPINAL COLUMN STENOSIS [None]
